FAERS Safety Report 5648683-2 (Version None)
Quarter: 2008Q1

REPORT INFORMATION
  Report Type: 
  Country: None (occurrence: None)
  Receive Date: 20080304
  Receipt Date: 20080226
  Transmission Date: 20080703
  Serious: Yes (Other)
  Sender: FDA-Public Use
  Company Number: B0507077A

PATIENT
  Age: 91 Year
  Sex: Female
  Weight: 40 kg

DRUGS (5)
  1. ARIXTRA [Suspect]
     Indication: THROMBOSIS PROPHYLAXIS
     Dosage: 1.5MG PER DAY
     Route: 058
     Dates: start: 20080127, end: 20080128
  2. LOXONIN [Suspect]
     Indication: PAIN
     Dosage: 60MG THREE TIMES PER DAY
     Route: 065
     Dates: start: 20080126, end: 20080129
  3. MUCOSTA [Concomitant]
     Dosage: 300MG PER DAY
     Route: 048
     Dates: start: 20080126, end: 20080101
  4. THYRADIN [Concomitant]
     Route: 048
  5. NU-LOTAN [Concomitant]
     Route: 048

REACTIONS (3)
  - GASTRIC ULCER [None]
  - HAEMOGLOBIN DECREASED [None]
  - MELAENA [None]
